FAERS Safety Report 8074157-8 (Version None)
Quarter: 2012Q1

REPORT INFORMATION
  Report Type: 
  Country: None (occurrence: None)
  Receive Date: 20120126
  Receipt Date: 20110620
  Transmission Date: 20120608
  Serious: Yes (Hospitalization, Other)
  Sender: FDA-Public Use
  Company Number: KR-ASTELLAS-2011US003273

PATIENT
  Age: 66 Year
  Sex: Female

DRUGS (2)
  1. TARCEVA [Suspect]
     Indication: MALIGNANT PLEURAL EFFUSION
  2. TARCEVA [Suspect]
     Indication: NON-SMALL CELL LUNG CANCER METASTATIC
     Dosage: UNK MG, UNKNOWN/D
     Route: 048
     Dates: start: 20081001

REACTIONS (7)
  - SPINAL FRACTURE [None]
  - PNEUMONIA [None]
  - LARGE INTESTINE PERFORATION [None]
  - ENTEROCUTANEOUS FISTULA [None]
  - LARGE INTESTINAL HAEMORRHAGE [None]
  - FALL [None]
  - OSTEOPOROSIS [None]
